FAERS Safety Report 25381764 (Version 1)
Quarter: 2025Q2

REPORT INFORMATION
  Report Type: Report from Study
  Country: IT (occurrence: IT)
  Receive Date: 20250531
  Receipt Date: 20250531
  Transmission Date: 20250717
  Serious: Yes (Other)
  Sender: CELLTRION
  Company Number: IT-ABBVIE-6023430

PATIENT

DRUGS (1)
  1. ADALIMUMAB [Suspect]
     Active Substance: ADALIMUMAB
     Indication: Inflammatory bowel disease
     Route: 058

REACTIONS (1)
  - Haemophagocytic lymphohistiocytosis [Unknown]
